FAERS Safety Report 13510482 (Version 1)
Quarter: 2017Q2

REPORT INFORMATION
  Report Type: Spontaneous
  Country: US (occurrence: US)
  Receive Date: 20170503
  Receipt Date: 20170503
  Transmission Date: 20170830
  Serious: No
  Sender: FDA-Public Use
  Company Number: US-PFIZER INC-2017186751

PATIENT
  Age: 56 Year
  Sex: Female

DRUGS (5)
  1. IBRANCE [Suspect]
     Active Substance: PALBOCICLIB
     Indication: METASTASES TO LIVER
  2. IBRANCE [Suspect]
     Active Substance: PALBOCICLIB
     Indication: BREAST CANCER FEMALE
     Dosage: 125 MG, CYCLIC (TAKE 1 C PO DAILY FOR 21 DAYS ON AND 7 DAYS OFF)
     Route: 048
     Dates: start: 20170405
  3. IBRANCE [Suspect]
     Active Substance: PALBOCICLIB
     Indication: CHOLANGIOCARCINOMA
  4. LETROZOLE. [Suspect]
     Active Substance: LETROZOLE
     Dosage: UNK
  5. IBRANCE [Suspect]
     Active Substance: PALBOCICLIB
     Indication: BONE NEOPLASM

REACTIONS (1)
  - Fatigue [Unknown]
